FAERS Safety Report 9036650 (Version 2)
Quarter: 2013Q1

REPORT INFORMATION
  Report Type: Spontaneous
  Country: US (occurrence: None)
  Receive Date: 20121205
  Receipt Date: 20130220
  Transmission Date: 20140127
  Serious: Yes (Death, Hospitalization)
  Sender: FDA-Public Use
  Company Number: 2012PROUSA02313

PATIENT
  Age: 63 Year
  Sex: Male
  Weight: 93.4 kg

DRUGS (8)
  1. PROVENGE [Suspect]
     Indication: PROSTATE CANCER METASTATIC
     Dosage: 250 ML, SINGLE, INTRAVENOUS
     Route: 042
     Dates: start: 20121022, end: 20121022
  2. LOSARTAN [Concomitant]
  3. CARTIA XT [Concomitant]
  4. TRIAMTERENE AND HYDROCHLOROTHIAZIDE [Concomitant]
  5. VICODIN [Concomitant]
  6. OMEPRAZOLE [Concomitant]
  7. METFORMIN HCL [Concomitant]
  8. KLOR-CON [Concomitant]

REACTIONS (7)
  - Intestinal obstruction [None]
  - Disease progression [None]
  - Refusal of treatment by patient [None]
  - Prostate cancer [None]
  - Gastroenteritis radiation [None]
  - Renal impairment [None]
  - Pneumoperitoneum [None]
